FAERS Safety Report 5380271-8 (Version None)
Quarter: 2007Q3

REPORT INFORMATION
  Report Type: 
  Country: None (occurrence: None)
  Receive Date: 20070706
  Receipt Date: 20070625
  Transmission Date: 20080115
  Serious: Yes (Other)
  Sender: FDA-Public Use
  Company Number: DE-AMGEN-US232395

PATIENT
  Age: 47 Year
  Sex: Female
  Weight: 72 kg

DRUGS (6)
  1. ENBREL [Suspect]
     Indication: PSORIATIC ARTHROPATHY
     Route: 058
     Dates: start: 20040101
  2. CELEBREX [Concomitant]
     Indication: PSORIATIC ARTHROPATHY
     Route: 048
     Dates: start: 20040101
  3. PREDNISOLONE [Concomitant]
     Indication: PSORIATIC ARTHROPATHY
     Dosage: UNKNOWN
     Route: 048
     Dates: start: 20020101, end: 20040101
  4. PREDNISOLONE [Concomitant]
     Route: 048
     Dates: start: 20040101
  5. PREDNISOLONE [Concomitant]
     Route: 048
     Dates: start: 20040101
  6. METHOTREXATE [Concomitant]
     Indication: PSORIATIC ARTHROPATHY
     Route: 058
     Dates: start: 20020101

REACTIONS (2)
  - CYST [None]
  - OSTEONECROSIS [None]
